APPROVED DRUG PRODUCT: FLUOCINONIDE
Active Ingredient: FLUOCINONIDE
Strength: 0.05%
Dosage Form/Route: SOLUTION;TOPICAL
Application: A074799 | Product #001 | TE Code: AT
Applicant: SUN PHARMA CANADA INC
Approved: Dec 31, 1996 | RLD: No | RS: Yes | Type: RX